FAERS Safety Report 12906696 (Version 1)
Quarter: 2016Q4

REPORT INFORMATION
  Report Type: Spontaneous
  Country: FR (occurrence: FR)
  Receive Date: 20161103
  Receipt Date: 20161103
  Transmission Date: 20170207
  Serious: Yes (Hospitalization)
  Sender: FDA-Public Use
  Company Number: FR-009507513-1610FRA013316

PATIENT
  Age: 45 Year
  Sex: Male

DRUGS (6)
  1. ISENTRESS [Suspect]
     Active Substance: RALTEGRAVIR POTASSIUM
     Indication: HIV INFECTION
     Dosage: 2 / DAY
     Route: 048
  2. KALETRA [Suspect]
     Active Substance: LOPINAVIR\RITONAVIR
     Indication: HIV INFECTION
     Dosage: 2 / DAY
     Route: 048
  3. MEXITIL [Concomitant]
     Active Substance: MEXILETINE HYDROCHLORIDE
     Dosage: 200MG 2/DAY
  4. SKENAN [Concomitant]
     Active Substance: MORPHINE SULFATE
     Dosage: 20 MG IN THE EVENING
  5. LESCOL [Concomitant]
     Active Substance: FLUVASTATIN SODIUM
     Dosage: 20 MG/ DAY
  6. LYRICA [Concomitant]
     Active Substance: PREGABALIN
     Dosage: 200 MG IN THE EVENING

REACTIONS (1)
  - Neuropathy peripheral [Unknown]

NARRATIVE: CASE EVENT DATE: 2013
